FAERS Safety Report 25295697 (Version 3)
Quarter: 2025Q3

REPORT INFORMATION
  Report Type: Spontaneous
  Country: US (occurrence: US)
  Receive Date: 20250511
  Receipt Date: 20250703
  Transmission Date: 20251020
  Serious: No
  Sender: SANOFI AVENTIS
  Company Number: US-SA-2025SA132982

PATIENT
  Sex: Female
  Weight: 78.18 kg

DRUGS (1)
  1. DUPIXENT [Suspect]
     Active Substance: DUPILUMAB
     Indication: Prurigo
     Dosage: 300 MG, QOW
     Route: 058

REACTIONS (4)
  - Blister [Unknown]
  - Hypersensitivity [Unknown]
  - Product dispensing issue [Unknown]
  - Product use in unapproved indication [Unknown]
